FAERS Safety Report 8560377-2 (Version None)
Quarter: 2012Q3

REPORT INFORMATION
  Report Type: 
  Country: None (occurrence: None)
  Receive Date: 20120727
  Receipt Date: 20120727
  Transmission Date: 20120928
  Serious: Yes (Hospitalization)
  Sender: FDA-Public Use
  Company Number: None

PATIENT
  Age: 70 Year
  Sex: Male
  Weight: 116.9 kg

DRUGS (6)
  1. ALLOPURINOL [Concomitant]
  2. HYDROCODONE BITARTRATE AND ACETAMINOPHEN [Concomitant]
  3. EXCEDRIN (MIGRAINE) [Suspect]
     Indication: HEADACHE
     Dosage: UP TO 3 TABLETS DAILY PO CHRONIC
     Route: 048
  4. DULERA [Concomitant]
  5. CHONDROITIN/GLUCOSAMINE [Concomitant]
  6. CELEBREX [Suspect]
     Indication: GOUT
     Dosage: 200MG DAILY PO CHRONIC
     Route: 048

REACTIONS (2)
  - DIVERTICULUM [None]
  - HAEMORRHOIDAL HAEMORRHAGE [None]
